FAERS Safety Report 12384416 (Version 1)
Quarter: 2016Q2

REPORT INFORMATION
  Report Type: Spontaneous
  Country: US (occurrence: None)
  Receive Date: 20160518
  Receipt Date: 20160518
  Transmission Date: 20160815
  Serious: Yes (Disabling)
  Sender: FDA-Public Use
  Company Number: None

PATIENT
  Age: 45 Year
  Sex: Female
  Weight: 56.7 kg

DRUGS (7)
  1. VITAMIN D [Concomitant]
     Active Substance: CHOLECALCIFEROL
  2. DIGESTIVE ENZYMES [Concomitant]
     Active Substance: UNSPECIFIED INGREDIENT
  3. FISH OIL [Concomitant]
     Active Substance: FISH OIL
  4. PROBIOTICS [Concomitant]
     Active Substance: PROBIOTICS NOS
  5. MULTI VITAMIN [Concomitant]
     Active Substance: VITAMINS
  6. CIPROFLOXACIN, 250 MG [Suspect]
     Active Substance: CIPROFLOXACIN
     Indication: URINARY TRACT INFECTION
     Route: 048
     Dates: start: 20160210, end: 20160213
  7. VITAMIN C [Concomitant]
     Active Substance: ASCORBIC ACID

REACTIONS (3)
  - Tendon pain [None]
  - Gait disturbance [None]
  - Dysstasia [None]

NARRATIVE: CASE EVENT DATE: 20160511
